FAERS Safety Report 8539282-3 (Version None)
Quarter: 2012Q3

REPORT INFORMATION
  Report Type: 
  Country: None (occurrence: None)
  Receive Date: 20120726
  Receipt Date: 20110720
  Transmission Date: 20120928
  Serious: No
  Sender: FDA-Public Use
  Company Number: US-ASTRAZENECA-2011SE43571

PATIENT
  Age: 40 Year
  Sex: Male
  Weight: 109.3 kg

DRUGS (7)
  1. GLYBURIDE [Concomitant]
     Dates: start: 20040223
  2. PROTONIX [Concomitant]
     Dates: start: 20040317
  3. ZOCOR [Concomitant]
     Dates: start: 20050426
  4. ZOLOFT [Concomitant]
     Dates: start: 20050426
  5. PAXIL [Concomitant]
     Dates: start: 20040223
  6. PAROXETINE [Concomitant]
     Dates: start: 20040414
  7. SEROQUEL [Suspect]
     Dosage: 100 TO 300 MG
     Route: 048
     Dates: start: 20040223

REACTIONS (3)
  - TRICHOMONIASIS [None]
  - TYPE 1 DIABETES MELLITUS [None]
  - HYPERLIPIDAEMIA [None]
